FAERS Safety Report 4656720-7 (Version None)
Quarter: 2005Q2

REPORT INFORMATION
  Report Type: 
  Country: None (occurrence: None)
  Receive Date: 20050506
  Receipt Date: 20050421
  Transmission Date: 20051028
  Serious: Yes (Hospitalization)
  Sender: FDA-Public Use
  Company Number: MK200504-0309-1

PATIENT
  Age: 56 Year
  Sex: Female

DRUGS (1)
  1. TECHNESCAN HDP [Suspect]
     Indication: BONE SCAN
     Dosage: UNK, ONE TIME, IV
     Route: 042

REACTIONS (3)
  - LOSS OF CONSCIOUSNESS [None]
  - PULSE ABSENT [None]
  - RESPIRATORY ARREST [None]
